FAERS Safety Report 4580224-3 (Version None)
Quarter: 2005Q1

REPORT INFORMATION
  Report Type: 
  Country: None (occurrence: None)
  Receive Date: 20050214
  Receipt Date: 20031218
  Transmission Date: 20050727
  Serious: Yes (Other)
  Sender: FDA-Public Use
  Company Number: US-GLAXOSMITHKLINE-A0494809A

PATIENT
  Sex: Male
  Weight: 85 kg

DRUGS (5)
  1. PAXIL [Suspect]
     Indication: ANXIETY
     Dosage: 20MG PER DAY
     Route: 048
     Dates: start: 19990101
  2. WELLBUTRIN [Concomitant]
     Indication: ANXIETY
     Route: 065
  3. LOPERAMIDE HCL [Concomitant]
     Indication: DRUG USE FOR UNKNOWN INDICATION
     Dosage: 2MG AS REQUIRED
     Route: 048
  4. SUMATRIPTAN [Concomitant]
     Indication: MIGRAINE
     Dosage: 6MG AS REQUIRED
     Route: 058
  5. ANDRODERM [Concomitant]
     Indication: HYPOGONADISM
     Dosage: 5MG PER DAY
     Route: 050

REACTIONS (15)
  - AMNESIA [None]
  - ANXIETY [None]
  - APHASIA [None]
  - DEPRESSION [None]
  - DRUG WITHDRAWAL SYNDROME [None]
  - ERECTILE DYSFUNCTION [None]
  - FATIGUE [None]
  - MENTAL DISORDER [None]
  - MIGRAINE [None]
  - NAUSEA [None]
  - NEUROSIS [None]
  - PARAESTHESIA [None]
  - SEXUAL DYSFUNCTION [None]
  - SOMNOLENCE [None]
  - SUICIDAL IDEATION [None]
